FAERS Safety Report 17319682 (Version 1)
Quarter: 2020Q1

REPORT INFORMATION
  Report Type: Spontaneous
  Country: PL (occurrence: PL)
  Receive Date: 20200125
  Receipt Date: 20200125
  Transmission Date: 20200409
  Serious: Yes (Other)
  Sender: FDA-Public Use
  Company Number: PL-ACCORD-170582

PATIENT
  Age: 18 Year
  Sex: Male

DRUGS (2)
  1. LEVETIRACETAM. [Suspect]
     Active Substance: LEVETIRACETAM
     Indication: EPILEPSY
     Dosage: REDUCED TO FROM 1,600 MG TO 1,200 MG,(AT A REDUCED?DOSE OF LEVETIRACETAM TO 1000 MG/DAY)
     Dates: start: 2017
  2. VALPROIC ACID. [Suspect]
     Active Substance: VALPROIC ACID
     Indication: EPILEPSY
     Dates: end: 201804

REACTIONS (2)
  - Aggression [Recovering/Resolving]
  - Hypersexuality [Recovering/Resolving]

NARRATIVE: CASE EVENT DATE: 2017
